FAERS Safety Report 7621748 (Version 1)
Quarter: 2020Q3

REPORT INFORMATION
  Report Type: Spontaneous
  Country: FI (occurrence: FI)
  Receive Date: 20101008
  Receipt Date: 20101008
  Transmission Date: 20201104
  Serious: Yes (Disabling)
  Sender: FDA-Public Use
  Company Number: FI-ROCHE-729971

PATIENT
  Age: 59 Year
  Sex: Female

DRUGS (2)
  1. IBANDRONIC ACID. [Suspect]
     Active Substance: IBANDRONIC ACID
     Indication: BREAST CANCER METASTATIC
     Dosage: DOSE: 6 MG/ 6 ML
     Route: 042
     Dates: start: 20100126, end: 201009
  2. LEVOTHYROXINE SODIUM. [Concomitant]
     Active Substance: LEVOTHYROXINE SODIUM
     Route: 048

REACTIONS (1)
  - Deafness neurosensory [Not Recovered/Not Resolved]

NARRATIVE: CASE EVENT DATE: 20100301
